FAERS Safety Report 22687109 (Version 2)
Quarter: 2025Q2

REPORT INFORMATION
  Report Type: Spontaneous
  Country: US (occurrence: US)
  Receive Date: 20230710
  Receipt Date: 20250415
  Transmission Date: 20250717
  Serious: No
  Sender: TEVA
  Company Number: US-TEVA-2023-US-2900432

PATIENT
  Age: 28 Year
  Sex: Male

DRUGS (1)
  1. ADDERALL XR [Suspect]
     Active Substance: AMPHETAMINE ASPARTATE\AMPHETAMINE SULFATE\DEXTROAMPHETAMINE SACCHARATE\DEXTROAMPHETAMINE SULFATE
     Indication: Attention deficit hyperactivity disorder
     Route: 065
     Dates: start: 202304

REACTIONS (1)
  - Drug effect less than expected [Unknown]
